FAERS Safety Report 4559110-0 (Version None)
Quarter: 2005Q1

REPORT INFORMATION
  Report Type: 
  Country: None (occurrence: None)
  Receive Date: 20050119
  Receipt Date: 20050103
  Transmission Date: 20050727
  Serious: Yes (Hospitalization)
  Sender: FDA-Public Use
  Company Number: DSA_25599_2005

PATIENT
  Age: 79 Year
  Sex: Male

DRUGS (5)
  1. ENALAPRIL MALEATE [Suspect]
     Dosage: 5 MG QD PO
     Route: 048
  2. GLUCOPHAGE [Suspect]
     Dosage: 850 MG QD PO
     Route: 048
  3. AMARYL [Suspect]
     Dosage: 2 MG QD PO
     Route: 048
     Dates: end: 20041208
  4. INSULATARD HUMAN [Suspect]
     Dosage: DF SC
     Route: 058
     Dates: end: 20041208
  5. MARCOUMAR [Concomitant]

REACTIONS (4)
  - DYSPNOEA [None]
  - GENERAL PHYSICAL HEALTH DETERIORATION [None]
  - HYPOGLYCAEMIA [None]
  - SOMNOLENCE [None]
